FAERS Safety Report 23247395 (Version 1)
Quarter: 2023Q4

REPORT INFORMATION
  Report Type: Report from Study
  Country: HK (occurrence: None)
  Receive Date: 20231130
  Receipt Date: 20231130
  Transmission Date: 20240110
  Serious: Yes (Hospitalization)
  Sender: FDA-Public Use
  Company Number: 2023A267232

PATIENT
  Age: 71 Year
  Sex: Female
  Weight: 49.7 kg

DRUGS (9)
  1. CILGAVIMAB\TIXAGEVIMAB [Suspect]
     Active Substance: CILGAVIMAB\TIXAGEVIMAB
     Indication: Prophylaxis
     Route: 030
     Dates: start: 20221115, end: 20221115
  2. TIMOLOL MALEATE [Concomitant]
     Active Substance: TIMOLOL MALEATE
     Indication: Symptomatic treatment
     Route: 047
     Dates: start: 20220429
  3. CALCIUM CARBONATE + VITAMIN D CHEWABLE TABLET [Concomitant]
     Indication: Supplementary motor area syndrome
     Route: 048
     Dates: start: 20220114
  4. FAMOTIDINE [Concomitant]
     Active Substance: FAMOTIDINE
     Indication: Prophylaxis
     Route: 048
     Dates: start: 20220207
  5. ZOPICLONE [Concomitant]
     Active Substance: ZOPICLONE
     Indication: Symptomatic treatment
     Route: 048
     Dates: start: 20220221
  6. VALACYCLOVIR HCL TABLET [Concomitant]
     Indication: Symptomatic treatment
     Route: 048
     Dates: start: 20220221
  7. ACETAMINOPHEN [Concomitant]
     Active Substance: ACETAMINOPHEN
     Indication: Prophylaxis
     Dosage: AS NEEDED
     Route: 048
     Dates: start: 20220113, end: 20231029
  8. PROMETHAZINE COMPOUND LINCTUS [Concomitant]
     Indication: Symptomatic treatment
     Route: 048
     Dates: start: 20230906, end: 20231016
  9. LEVOFLOXACIN [Concomitant]
     Active Substance: LEVOFLOXACIN
     Indication: Symptomatic treatment
     Route: 048
     Dates: start: 20230911, end: 20231108

REACTIONS (1)
  - COVID-19 [Recovered/Resolved]

NARRATIVE: CASE EVENT DATE: 20230909
